FAERS Safety Report 9108362 (Version 1)
Quarter: 2013Q1

REPORT INFORMATION
  Report Type: Spontaneous
  Country: IT (occurrence: IT)
  Receive Date: 20130222
  Receipt Date: 20130222
  Transmission Date: 20140127
  Serious: Yes (Life-Threatening)
  Sender: FDA-Public Use
  Company Number: IT-SANOFI-AVENTIS-2013SA014664

PATIENT
  Age: 77 Year
  Sex: Female
  Weight: 52 kg

DRUGS (9)
  1. PLAVIX [Suspect]
     Indication: PRODUCT USED FOR UNKNOWN INDICATION
     Route: 065
     Dates: start: 20121212, end: 20130128
  2. PRITOR [Concomitant]
  3. CORDARONE [Concomitant]
  4. LASIX [Concomitant]
  5. LUVION [Concomitant]
  6. LANSOX [Concomitant]
  7. SIVASTIN [Concomitant]
  8. CARDIOASPIRIN [Concomitant]
  9. BISOPROLOL [Concomitant]

REACTIONS (5)
  - Pseudomonas infection [Recovered/Resolved with Sequelae]
  - Cellulitis [Recovered/Resolved with Sequelae]
  - Shock [Recovered/Resolved with Sequelae]
  - Neutropenia [Recovered/Resolved with Sequelae]
  - Agranulocytosis [Recovered/Resolved with Sequelae]
